FAERS Safety Report 5775556-7 (Version None)
Quarter: 2008Q2

REPORT INFORMATION
  Report Type: 
  Country: None (occurrence: None)
  Receive Date: 20080617
  Receipt Date: 20080612
  Transmission Date: 20081010
  Serious: Yes (Other)
  Sender: FDA-Public Use
  Company Number: US-ASTRAZENECA-2008UW11805

PATIENT
  Age: 50 Year
  Sex: Male

DRUGS (7)
  1. CRESTOR [Suspect]
     Indication: BLOOD CHOLESTEROL
     Route: 048
  2. MORPHINE [Concomitant]
  3. TYLENOL [Concomitant]
  4. ALPRAZOLAM [Concomitant]
  5. CELEBREX [Concomitant]
  6. PANCREATIC ENZYMES [Concomitant]
  7. TRICOR [Concomitant]

REACTIONS (3)
  - BLOOD CREATININE INCREASED [None]
  - BLOOD TRIGLYCERIDES INCREASED [None]
  - HIGH DENSITY LIPOPROTEIN DECREASED [None]
